FAERS Safety Report 5432251-1 (Version None)
Quarter: 2007Q3

REPORT INFORMATION
  Report Type: 
  Country: None (occurrence: None)
  Receive Date: 20070830
  Receipt Date: 20070819
  Transmission Date: 20080115
  Serious: Yes (Other)
  Sender: FDA-Public Use
  Company Number: US-PFIZER INC-2007069976

PATIENT
  Sex: Female
  Weight: 78.5 kg

DRUGS (2)
  1. CHANTIX [Suspect]
     Indication: SMOKING CESSATION THERAPY
  2. ZOCOR [Concomitant]

REACTIONS (6)
  - ASTHENIA [None]
  - DRUG WITHDRAWAL SYNDROME [None]
  - FEELING HOT [None]
  - PARAESTHESIA [None]
  - TREMOR [None]
  - VISUAL DISTURBANCE [None]
